FAERS Safety Report 7355432-9 (Version None)
Quarter: 2011Q1

REPORT INFORMATION
  Report Type: 
  Country: None (occurrence: None)
  Receive Date: 20110316
  Receipt Date: 20110302
  Transmission Date: 20110831
  Serious: Yes (Other)
  Sender: FDA-Public Use
  Company Number: JP-ELI_LILLY_AND_COMPANY-JP201103000815

PATIENT
  Age: 81 Year
  Sex: Male

DRUGS (1)
  1. GEMZAR [Suspect]
     Indication: PANCREATIC CARCINOMA NON-RESECTABLE
     Dosage: 1200 MG, UNK
     Route: 042
     Dates: start: 20110218, end: 20110218

REACTIONS (1)
  - ABDOMINAL PAIN [None]
